FAERS Safety Report 6782758-X (Version None)
Quarter: 2010Q2

REPORT INFORMATION
  Report Type: 
  Country: None (occurrence: None)
  Receive Date: 20100621
  Receipt Date: 20100607
  Transmission Date: 20101027
  Serious: Yes (Hospitalization, Other)
  Sender: FDA-Public Use
  Company Number: US-ELI_LILLY_AND_COMPANY-US201006002640

PATIENT
  Sex: Female

DRUGS (19)
  1. FORTEO [Suspect]
     Dosage: 20 UG, DAILY (1/D)
     Dates: start: 20090601
  2. LANTUS [Concomitant]
     Dosage: 60 U, EACH MORNING
  3. HUMALOG [Concomitant]
     Dosage: 8 U, EACH MORNING
  4. HUMALOG [Concomitant]
     Dosage: 8 U, EACH EVENING
  5. METOPROLOL TARTRATE [Concomitant]
     Dosage: 15 MG, EACH MORNING
  6. METOPROLOL TARTRATE [Concomitant]
     Dosage: 15 MG, EACH EVENING
  7. LISINOPRIL [Concomitant]
     Dosage: 40 MG, EACH EVENING
  8. LOVASTATIN [Concomitant]
     Dosage: 40 MG, EACH MORNING
  9. ISOSORBIDE [Concomitant]
     Dosage: 30 MG, EACH MORNING
  10. CITOPRAM [Concomitant]
     Dosage: 20 MG, EACH MORNING
  11. MIRTAZAPINE [Concomitant]
     Dosage: 15 MG, UNKNOWN
  12. CLONAZEPAM [Concomitant]
     Dosage: UNK, EACH EVENING
  13. NIASPAN [Concomitant]
     Dosage: 500 MG, EACH EVENING
  14. VITAMIN D3 [Concomitant]
     Dosage: UNK, EACH MORNING
  15. CALCIUM CARBONATE [Concomitant]
     Dosage: UNK, EACH MORNING
  16. MULTIVITAMIN [Concomitant]
     Dosage: UNK, EACH MORNING
  17. MULTIVITAMIN [Concomitant]
     Dosage: UNK, EACH EVENING
  18. PLAVIX [Concomitant]
     Dosage: 75 MG, EACH MORNING
  19. ASPIRIN [Concomitant]
     Dosage: 81 MG, UNKNOWN

REACTIONS (9)
  - ARTHRALGIA [None]
  - CARDIAC FAILURE CONGESTIVE [None]
  - CORONARY ARTERY DISEASE [None]
  - DEPRESSION [None]
  - GOUT [None]
  - OEDEMA PERIPHERAL [None]
  - PAIN IN EXTREMITY [None]
  - RENAL DISORDER [None]
  - SOMNOLENCE [None]
